FAERS Safety Report 5093106-8 (Version None)
Quarter: 2006Q3

REPORT INFORMATION
  Report Type: 
  Country: None (occurrence: None)
  Receive Date: 20060828
  Receipt Date: 20060815
  Transmission Date: 20061208
  Serious: Yes (Life-Threatening, Hospitalization)
  Sender: FDA-Public Use
  Company Number: GXKR2006GB04792

PATIENT
  Age: 54 Year
  Sex: Female
  Weight: 110 kg

DRUGS (2)
  1. ASPIRIN [Suspect]
     Dosage: 75 MG, ORAL
     Route: 048
     Dates: start: 20060630, end: 20060718
  2. WARFARIN SODIUM [Suspect]
     Dosage: ORAL
     Route: 048
     Dates: start: 20060630, end: 20060718

REACTIONS (3)
  - CEREBELLAR HAEMORRHAGE [None]
  - INTERNATIONAL NORMALISED RATIO INCREASED [None]
  - UNEVALUABLE EVENT [None]
